FAERS Safety Report 24957108 (Version 3)
Quarter: 2025Q2

REPORT INFORMATION
  Report Type: Spontaneous
  Country: JP (occurrence: JP)
  Receive Date: 20250211
  Receipt Date: 20250408
  Transmission Date: 20250716
  Serious: Yes (Hospitalization, Other)
  Sender: BRISTOL MYERS SQUIBB
  Company Number: JP-BRISTOL-MYERS SQUIBB COMPANY-2025-014137

PATIENT
  Age: 6 Decade
  Sex: Male

DRUGS (2)
  1. AUGTYRO [Suspect]
     Active Substance: REPOTRECTINIB
     Indication: Non-small cell lung cancer
     Dosage: DOSE : 4 CAPSULES
     Route: 048
     Dates: start: 20241210, end: 20250121
  2. AUGTYRO [Suspect]
     Active Substance: REPOTRECTINIB
     Dosage: DOSE : 4 CAPSULES
     Route: 048

REACTIONS (1)
  - Nasopharyngitis [Recovering/Resolving]

NARRATIVE: CASE EVENT DATE: 20250122
